FAERS Safety Report 10041013 (Version 1)
Quarter: 2014Q1

REPORT INFORMATION
  Report Type: Spontaneous
  Country: US (occurrence: None)
  Receive Date: 20140326
  Receipt Date: 20140326
  Transmission Date: 20141002
  Serious: Yes (Death)
  Sender: FDA-Public Use
  Company Number: None

PATIENT
  Age: 43 Year
  Sex: Male
  Weight: 50.4 kg

DRUGS (22)
  1. ZANAMIVIR [Suspect]
     Indication: INFLUENZA
     Route: 042
     Dates: start: 20140321, end: 20140324
  2. ZANAMIVIR [Suspect]
     Indication: PATHOGEN RESISTANCE
     Route: 042
     Dates: start: 20140321, end: 20140324
  3. ACETAMINOPHEN [Concomitant]
  4. ACYCLOVIR [Concomitant]
  5. ALBUTEROL [Concomitant]
  6. ATOVAQUONE [Concomitant]
  7. AZITHROMYCIN [Concomitant]
  8. CEFEPIME + SODIUM CHLORIDE [Concomitant]
  9. CHLORHEXIDINE [Concomitant]
  10. DOCUSATE-SENNA [Concomitant]
  11. FLUTICASONE [Concomitant]
  12. GABAPENTIN [Concomitant]
  13. HEPARIN [Concomitant]
  14. HYDROCORTISONE [Concomitant]
  15. LANSOPRAZOLE [Concomitant]
  16. LINEZOLID + DILUENT [Concomitant]
  17. METOCLOPRAMIDE [Concomitant]
  18. MONTELUKAST [Concomitant]
  19. MULTIVITAMIN [Concomitant]
  20. OCULAR LUBRICANT [Concomitant]
  21. URSODIOL [Concomitant]
  22. VORICONAZOLE [Concomitant]

REACTIONS (3)
  - Respiratory disorder [None]
  - Condition aggravated [None]
  - Cardio-respiratory arrest [None]
